FAERS Safety Report 5267843-6 (Version None)
Quarter: 2007Q1

REPORT INFORMATION
  Report Type: 
  Country: None (occurrence: None)
  Receive Date: 20070316
  Receipt Date: 20070306
  Transmission Date: 20070707
  Serious: Yes (Other)
  Sender: FDA-Public Use
  Company Number: JP-PFIZER INC-2007001962

PATIENT
  Age: 36 Year
  Sex: Male

DRUGS (2)
  1. MIGLITOL [Suspect]
     Indication: DIABETES MELLITUS
     Dosage: DAILY DOSE:150MG
     Route: 048
     Dates: start: 20060420, end: 20060522
  2. GLYCORAN [Concomitant]
     Indication: DIABETES MELLITUS
     Route: 048

REACTIONS (4)
  - ABDOMINAL DISTENSION [None]
  - ALCOHOL USE [None]
  - HEPATIC FUNCTION ABNORMAL [None]
  - MALAISE [None]
